FAERS Safety Report 6310876-9 (Version None)
Quarter: 2009Q3

REPORT INFORMATION
  Report Type: 
  Country: None (occurrence: None)
  Receive Date: 20090812
  Receipt Date: 20090723
  Transmission Date: 20100115
  Serious: Yes (Other)
  Sender: FDA-Public Use
  Company Number: ES-IGSA-IG588

PATIENT
  Age: 67 Year
  Sex: Male

DRUGS (5)
  1. LEVOFLOXACIN [Suspect]
     Indication: PROPHYLAXIS AGAINST TRANSPLANT REJECTION
     Dosage: ORAL
     Route: 048
     Dates: start: 20090309
  2. VALACYCLOVIR [Suspect]
     Indication: PROPHYLAXIS AGAINST TRANSPLANT REJECTION
     Dosage: ORAL
     Route: 048
  3. FLEBOGAMMA [Suspect]
     Indication: PROPHYLAXIS AGAINST TRANSPLANT REJECTION
     Dosage: 7G DAILY, INTRAVENOUSLY
     Route: 042
     Dates: start: 20090309
  4. VITAMIN K TAB [Suspect]
     Indication: PROPHYLAXIS AGAINST TRANSPLANT REJECTION
     Dosage: INTRAVENOUSLY
     Route: 042
     Dates: start: 20090309
  5. FLUCONAZOLE [Concomitant]

REACTIONS (3)
  - DIARRHOEA [None]
  - PYREXIA [None]
  - VOMITING [None]
